FAERS Safety Report 7712489-0 (Version None)
Quarter: 2011Q3

REPORT INFORMATION
  Report Type: 
  Country: None (occurrence: None)
  Receive Date: 20110826
  Receipt Date: 20110826
  Transmission Date: 20111222
  Serious: Yes (Life-Threatening)
  Sender: FDA-Public Use
  Company Number: None

PATIENT
  Age: 58 Year
  Sex: Female
  Weight: 86.182 kg

DRUGS (1)
  1. COPAXONE [Suspect]
     Indication: MULTIPLE SCLEROSIS
     Route: 058
     Dates: start: 20081124, end: 20110825

REACTIONS (6)
  - TREMOR [None]
  - SKIN BURNING SENSATION [None]
  - CHILLS [None]
  - THROAT TIGHTNESS [None]
  - BODY TEMPERATURE INCREASED [None]
  - DYSPNOEA [None]
